FAERS Safety Report 8882495 (Version 2)
Quarter: 2013Q1

REPORT INFORMATION
  Report Type: Spontaneous
  Country: US (occurrence: US)
  Receive Date: 20121103
  Receipt Date: 20130308
  Transmission Date: 20140127
  Serious: Yes (Hospitalization, Other)
  Sender: FDA-Public Use
  Company Number: US-US-EMD SERONO, INC.-7170994

PATIENT
  Age: 59 None
  Sex: Female

DRUGS (1)
  1. REBIF [Suspect]
     Indication: MULTIPLE SCLEROSIS
     Route: 058
     Dates: start: 20091216

REACTIONS (6)
  - Rotator cuff syndrome [Unknown]
  - Multiple sclerosis relapse [Unknown]
  - Fall [Unknown]
  - Joint dislocation [Unknown]
  - Balance disorder [Not Recovered/Not Resolved]
  - Injection site erythema [Not Recovered/Not Resolved]
